FAERS Safety Report 13994489 (Version 1)
Quarter: 2017Q3

REPORT INFORMATION
  Report Type: Report from Study
  Country: IT (occurrence: IT)
  Receive Date: 20170920
  Receipt Date: 20170920
  Transmission Date: 20171128
  Serious: Yes (Hospitalization, Other)
  Sender: FDA-Public Use
  Company Number: IT-MYLANLABS-2017M1057368

PATIENT
  Age: 13 Year
  Sex: Female
  Weight: 51 kg

DRUGS (3)
  1. ORUDIS [Suspect]
     Active Substance: KETOPROFEN
     Indication: PRODUCT USED FOR UNKNOWN INDICATION
     Dosage: 300 MG TOTAL
     Route: 048
     Dates: start: 20170831
  2. MONTELUKAST [Suspect]
     Active Substance: MONTELUKAST SODIUM
     Indication: PRODUCT USED FOR UNKNOWN INDICATION
     Dosage: 15 MG TOTAL
     Route: 048
     Dates: start: 20170831
  3. PARACETAMOL [Suspect]
     Active Substance: ACETAMINOPHEN
     Indication: PRODUCT USED FOR UNKNOWN INDICATION
     Dosage: 12 G TOTAL
     Route: 048
     Dates: start: 20170831

REACTIONS (4)
  - Abdominal pain [Recovered/Resolved]
  - Overdose [Unknown]
  - Vomiting [Recovered/Resolved]
  - Drug abuse [Recovered/Resolved]

NARRATIVE: CASE EVENT DATE: 20170831
